FAERS Safety Report 15386491 (Version 1)
Quarter: 2018Q3

REPORT INFORMATION
  Report Type: Report from Study
  Country: US (occurrence: US)
  Receive Date: 20180914
  Receipt Date: 20180914
  Transmission Date: 20181010
  Serious: Yes (Other)
  Sender: FDA-Public Use
  Company Number: US-PFIZER INC-2018215059

PATIENT
  Age: 48 Year
  Sex: Female

DRUGS (2)
  1. IBRANCE [Suspect]
     Active Substance: PALBOCICLIB
     Indication: BREAST CANCER FEMALE
     Dosage: 125 MG, CYCLIC (DAILY, FOR 21 DAYS AND OFF 7 DAYS)
     Route: 048
     Dates: start: 20180425, end: 2018
  2. FASLODEX [Concomitant]
     Active Substance: FULVESTRANT
     Dosage: UNK, MONTHLY

REACTIONS (12)
  - Abdominal discomfort [Unknown]
  - Erythema [Unknown]
  - Hot flush [Unknown]
  - Tongue discolouration [Recovered/Resolved]
  - Skin fissures [Unknown]
  - Bone marrow failure [Unknown]
  - Fatigue [Recovered/Resolved]
  - Stomatitis [Recovered/Resolved]
  - Oral disorder [Unknown]
  - Dry skin [Unknown]
  - Dizziness [Recovered/Resolved]
  - Feeling abnormal [Recovered/Resolved]

NARRATIVE: CASE EVENT DATE: 2018
